FAERS Safety Report 8233352-5 (Version None)
Quarter: 2012Q1

REPORT INFORMATION
  Report Type: 
  Country: None (occurrence: None)
  Receive Date: 20120326
  Receipt Date: 20120314
  Transmission Date: 20120608
  Serious: Yes (Other)
  Sender: FDA-Public Use
  Company Number: NL-US-EMD SERONO, INC.-7119327

PATIENT
  Sex: Male
  Weight: 85 kg

DRUGS (3)
  1. REBIF [Suspect]
  2. REBIF [Suspect]
     Indication: MULTIPLE SCLEROSIS
     Dates: start: 20120229
  3. REBIF [Suspect]

REACTIONS (1)
  - EPILEPSY [None]
